FAERS Safety Report 5119661-7 (Version None)
Quarter: 2006Q4

REPORT INFORMATION
  Report Type: 
  Country: None (occurrence: None)
  Receive Date: 20061003
  Receipt Date: 20060924
  Transmission Date: 20070319
  Serious: Yes (Hospitalization)
  Sender: FDA-Public Use
  Company Number: US-ROCHE-464704

PATIENT
  Age: 64 Year
  Sex: Male

DRUGS (6)
  1. PEGASYS [Suspect]
     Dosage: STRENGTH REPORTED AS 180 MCG/0.5 ML.
     Route: 058
     Dates: start: 20060613
  2. RIBAVIRIN [Suspect]
     Route: 048
     Dates: start: 20060710
  3. RIBAVIRIN [Suspect]
     Route: 048
     Dates: start: 20060613, end: 20060709
  4. LEXAPRO [Concomitant]
     Indication: ANXIETY
     Dosage: DOSAGE REGIMEN REPORTED AS 1 TAB/D.
     Route: 048
  5. TRAZODONE HCL [Concomitant]
     Indication: SLEEP DISORDER THERAPY
     Dosage: AT NIGHT. DOSAGE REGIMEN REPORTED AS 1 TABLET.
  6. KLONOPIN [Concomitant]
     Indication: SLEEP DISORDER THERAPY
     Dosage: AT NIGHT.

REACTIONS (4)
  - ASTHENIA [None]
  - BLOOD SODIUM DECREASED [None]
  - DIZZINESS [None]
  - POLYDIPSIA [None]
